FAERS Safety Report 8961088 (Version 2)
Quarter: 2012Q4

REPORT INFORMATION
  Report Type: 
  Country: GB (occurrence: GB)
  Receive Date: 20121212
  Receipt Date: 20121221
  Transmission Date: 20130627
  Serious: Yes (Other)
  Sender: FDA-Public Use
  Company Number: GB-BAYER-2012-130158

PATIENT
  Sex: Female

DRUGS (1)
  1. CANESTEN PESSARY [Suspect]
     Dosage: UNK
     Route: 067
     Dates: start: 20121207

REACTIONS (3)
  - Vaginal haemorrhage [None]
  - Vaginal discharge [None]
  - Product solubility abnormal [None]
